FAERS Safety Report 17165806 (Version 3)
Quarter: 2020Q3

REPORT INFORMATION
  Report Type: Spontaneous
  Country: DE (occurrence: DE)
  Receive Date: 20191217
  Receipt Date: 20200807
  Transmission Date: 20201102
  Serious: Yes (Other)
  Sender: FDA-Public Use
  Company Number: NVSC2019DE069314

PATIENT

DRUGS (4)
  1. BUDESONIDE. [Suspect]
     Active Substance: BUDESONIDE
     Indication: FOETAL EXPOSURE DURING PREGNANCY
  2. BUDESONIDE. [Suspect]
     Active Substance: BUDESONIDE
     Indication: ASTHMA
     Dosage: MATERNAL DOSE: UNK
     Route: 064
  3. PARACETAMOL [Suspect]
     Active Substance: ACETAMINOPHEN
     Indication: PAIN
     Dosage: MATERNAL DOSE: 1000 MG, QD
     Route: 064
  4. PARACETAMOL [Suspect]
     Active Substance: ACETAMINOPHEN
     Indication: FOETAL EXPOSURE DURING PREGNANCY

REACTIONS (3)
  - Foetal exposure during pregnancy [Unknown]
  - Premature baby [Unknown]
  - Patent ductus arteriosus [Unknown]
